FAERS Safety Report 15453446 (Version 2)
Quarter: 2018Q4

REPORT INFORMATION
  Report Type: Spontaneous
  Country: BR (occurrence: BR)
  Receive Date: 20181001
  Receipt Date: 20181005
  Transmission Date: 20190204
  Serious: No
  Sender: FDA-Public Use
  Company Number: BR-009507513-1809BRA011143

PATIENT
  Sex: Female

DRUGS (2)
  1. JANUMET XR [Suspect]
     Active Substance: METFORMIN HYDROCHLORIDE\SITAGLIPTIN PHOSPHATE
     Dosage: STRENGHT: 50MG/1000MG
     Route: 048
  2. JANUMET XR [Suspect]
     Active Substance: METFORMIN HYDROCHLORIDE\SITAGLIPTIN PHOSPHATE
     Dosage: STERNGTH:100MG/1000MG
     Route: 048

REACTIONS (2)
  - Product dispensing error [Unknown]
  - Product storage error [Unknown]
